FAERS Safety Report 4427088-6 (Version None)
Quarter: 2004Q3

REPORT INFORMATION
  Report Type: 
  Country: None (occurrence: None)
  Receive Date: 20040811
  Receipt Date: 20040728
  Transmission Date: 20050211
  Serious: Yes (Hospitalization, Other)
  Sender: FDA-Public Use
  Company Number: USA040773820

PATIENT
  Age: 54 Year
  Sex: Female
  Weight: 116 kg

DRUGS (3)
  1. HUMULIN R [Suspect]
     Dates: start: 19940101
  2. HUMULIN R [Suspect]
     Dosage: 20 U OTEHR
     Route: 050
     Dates: start: 20030101
  3. HUMULIN 70/30 [Suspect]
     Dosage: 20 U/2 DAY
     Route: 058
     Dates: start: 20030101

REACTIONS (3)
  - DIALYSIS [None]
  - LEG AMPUTATION [None]
  - RENAL FAILURE [None]
